FAERS Safety Report 7031494-3 (Version None)
Quarter: 2010Q4

REPORT INFORMATION
  Report Type: 
  Country: None (occurrence: None)
  Receive Date: 20101006
  Receipt Date: 20101006
  Transmission Date: 20110411
  Serious: Yes (Hospitalization, Disabling, Other)
  Sender: FDA-Public Use
  Company Number: None

PATIENT
  Age: 32 Year
  Sex: Female
  Weight: 90.9 kg

DRUGS (1)
  1. MINOCYCLINE HCL [Suspect]
     Indication: ACNE
     Dosage: 100MG BID PO
     Route: 047
     Dates: start: 20070601, end: 20080101

REACTIONS (4)
  - HYPERHIDROSIS [None]
  - IRRITABILITY [None]
  - PALPITATIONS [None]
  - THYROID CANCER [None]
